FAERS Safety Report 5716935-3 (Version None)
Quarter: 2008Q2

REPORT INFORMATION
  Report Type: 
  Country: None (occurrence: None)
  Receive Date: 20080422
  Receipt Date: 20080411
  Transmission Date: 20081010
  Serious: Yes (Other)
  Sender: FDA-Public Use
  Company Number: 2008JP001858

PATIENT
  Age: 87 Year
  Sex: Female

DRUGS (1)
  1. VESICARE [Suspect]
     Indication: HYPERTONIC BLADDER
     Dosage: 5 MG,  /D, ORAL
     Route: 048
     Dates: start: 20070319, end: 20070820

REACTIONS (2)
  - COGNITIVE DISORDER [None]
  - CONDITION AGGRAVATED [None]
